FAERS Safety Report 16792004 (Version 2)
Quarter: 2019Q3

REPORT INFORMATION
  Report Type: Spontaneous
  Country: DE (occurrence: DE)
  Receive Date: 20190910
  Receipt Date: 20190926
  Transmission Date: 20191005
  Serious: Yes (Death)
  Sender: FDA-Public Use
  Company Number: DE-MYLANLABS-2019M1084470

PATIENT
  Age: 16 Year
  Sex: Female

DRUGS (15)
  1. CYCLOPHOSPHAMIDE. [Suspect]
     Active Substance: CYCLOPHOSPHAMIDE
     Indication: BRAIN CANCER METASTATIC
     Dosage: UNK
     Route: 065
  2. CYTARABINE. [Suspect]
     Active Substance: CYTARABINE
     Indication: BRAIN CANCER METASTATIC
     Dosage: UNK
     Route: 065
  3. CISPLATIN. [Suspect]
     Active Substance: CISPLATIN
     Indication: MEDULLOBLASTOMA
  4. METHOTREXATE. [Suspect]
     Active Substance: METHOTREXATE
     Indication: MEDULLOBLASTOMA
     Dosage: UNK
     Route: 065
  5. CARBOPLATIN. [Suspect]
     Active Substance: CARBOPLATIN
     Indication: MEDULLOBLASTOMA
  6. METHOTREXATE. [Suspect]
     Active Substance: METHOTREXATE
     Indication: BRAIN CANCER METASTATIC
     Dosage: UNK
     Route: 037
  7. METHOTREXATE. [Suspect]
     Active Substance: METHOTREXATE
     Dosage: UNK
     Route: 042
  8. CYCLOPHOSPHAMIDE. [Suspect]
     Active Substance: CYCLOPHOSPHAMIDE
     Indication: MEDULLOBLASTOMA
  9. ETOPOSIDE. [Suspect]
     Active Substance: ETOPOSIDE
     Indication: BRAIN CANCER METASTATIC
     Dosage: UNK
     Route: 065
  10. ETOPOSIDE. [Suspect]
     Active Substance: ETOPOSIDE
     Indication: MEDULLOBLASTOMA
  11. CISPLATIN. [Suspect]
     Active Substance: CISPLATIN
     Indication: BRAIN CANCER METASTATIC
     Dosage: UNK
     Route: 065
  12. VINCRISTINE SULFATE. [Suspect]
     Active Substance: VINCRISTINE SULFATE
     Indication: MEDULLOBLASTOMA
  13. VINCRISTINE SULFATE. [Suspect]
     Active Substance: VINCRISTINE SULFATE
     Indication: BRAIN CANCER METASTATIC
     Dosage: UNK
     Route: 065
  14. CARBOPLATIN. [Suspect]
     Active Substance: CARBOPLATIN
     Indication: BRAIN CANCER METASTATIC
     Dosage: UNK
     Route: 065
  15. CYTARABINE. [Suspect]
     Active Substance: CYTARABINE
     Indication: MEDULLOBLASTOMA

REACTIONS (4)
  - Glioma [Fatal]
  - Product use in unapproved indication [Unknown]
  - Product use issue [Unknown]
  - Second primary malignancy [Fatal]
